FAERS Safety Report 10491851 (Version 1)
Quarter: 2014Q4

REPORT INFORMATION
  Report Type: Spontaneous
  Country: US (occurrence: US)
  Receive Date: 20141002
  Receipt Date: 20141002
  Transmission Date: 20150528
  Serious: No
  Sender: FDA-Public Use
  Company Number: US-GLAXOSMITHKLINE-A1060822A

PATIENT
  Age: 60 Year
  Sex: Female

DRUGS (3)
  1. SLEEP AID [Concomitant]
     Active Substance: DIPHENHYDRAMINE HYDROCHLORIDE\DOXYLAMINE SUCCINATE
  2. ADVAIR HFA [Suspect]
     Active Substance: FLUTICASONE PROPIONATE\SALMETEROL XINAFOATE
     Indication: CHRONIC OBSTRUCTIVE PULMONARY DISEASE
     Dosage: 1PUFF TWICE PER DAY
     Route: 055
     Dates: start: 2013
  3. MUCINEX [Concomitant]
     Active Substance: GUAIFENESIN

REACTIONS (10)
  - Productive cough [Recovering/Resolving]
  - Abdominal discomfort [Recovering/Resolving]
  - Ear discomfort [Recovering/Resolving]
  - Ill-defined disorder [Recovering/Resolving]
  - Headache [Recovering/Resolving]
  - Asthenia [Recovering/Resolving]
  - Influenza [Recovering/Resolving]
  - Cough [Recovering/Resolving]
  - Poor quality sleep [Recovering/Resolving]
  - Dyspnoea [Recovering/Resolving]

NARRATIVE: CASE EVENT DATE: 20140207
